FAERS Safety Report 11410708 (Version 1)
Quarter: 2015Q3

REPORT INFORMATION
  Report Type: Spontaneous
  Country: US (occurrence: US)
  Receive Date: 20150824
  Receipt Date: 20150824
  Transmission Date: 20151125
  Serious: No
  Sender: FDA-Public Use
  Company Number: US-BAYER-2015-406749

PATIENT
  Age: 75 Year
  Sex: Female
  Weight: 68.27 kg

DRUGS (1)
  1. CLARITIN-D 24 HOUR [Suspect]
     Active Substance: LORATADINE\PSEUDOEPHEDRINE SULFATE
     Indication: SEASONAL ALLERGY
     Dosage: 1 DF, QD, WITH FOOD
     Dates: start: 20150807, end: 20150817

REACTIONS (1)
  - Drug ineffective [Unknown]
